FAERS Safety Report 8520085-0 (Version None)
Quarter: 2012Q3

REPORT INFORMATION
  Report Type: 
  Country: None (occurrence: None)
  Receive Date: 20120719
  Receipt Date: 20120703
  Transmission Date: 20120928
  Serious: No
  Sender: FDA-Public Use
  Company Number: US-009507513-1207USA001613

PATIENT

DRUGS (6)
  1. LISINOPRIL [Concomitant]
     Dosage: 10 MG, UNK
  2. ESCITALOPRAM [Concomitant]
     Dosage: 10 MG, UNK
  3. RIBAVIRIN [Concomitant]
     Dosage: PAK 1200, QD
  4. RIBASPHERE [Concomitant]
     Dosage: 200 MG, UNK
  5. PEG-INTRON [Suspect]
     Dosage: 150 MICROGRAM, QW
  6. TYLENOL [Concomitant]
     Dosage: 650 MG, Q8H

REACTIONS (3)
  - ANAEMIA [None]
  - DIARRHOEA [None]
  - INFLUENZA LIKE ILLNESS [None]
